FAERS Safety Report 15373477 (Version 11)
Quarter: 2022Q2

REPORT INFORMATION
  Report Type: Report from Study
  Country: CZ (occurrence: CZ)
  Receive Date: 20180912
  Receipt Date: 20220422
  Transmission Date: 20220721
  Serious: Yes (Hospitalization, Other)
  Sender: FDA-Public Use
  Company Number: PHHY2018CZ091165

PATIENT
  Age: 3 Year
  Sex: Female
  Weight: 15.2 kg

DRUGS (9)
  1. TRAMETINIB [Suspect]
     Active Substance: TRAMETINIB
     Indication: Neurofibromatosis
     Dosage: 0.032 MG/KG, UNK
     Route: 048
     Dates: start: 20180731, end: 20180824
  2. TRAMETINIB [Suspect]
     Active Substance: TRAMETINIB
     Indication: Metastatic malignant melanoma
     Dosage: 0.032 MG/KG, UNK
     Route: 048
     Dates: end: 20181022
  3. TRAMETINIB [Suspect]
     Active Substance: TRAMETINIB
     Dosage: UNK
     Route: 048
     Dates: end: 20190111
  4. TRAMETINIB [Suspect]
     Active Substance: TRAMETINIB
     Dosage: UNK
     Route: 048
     Dates: end: 20190116
  5. TRAMETINIB [Suspect]
     Active Substance: TRAMETINIB
     Dosage: UNK
     Route: 065
     Dates: start: 20220301, end: 20220307
  6. DABRAFENIB [Suspect]
     Active Substance: DABRAFENIB
     Indication: Neurofibromatosis
     Dosage: UNK
     Route: 065
  7. DABRAFENIB [Suspect]
     Active Substance: DABRAFENIB
     Indication: Metastatic malignant melanoma
     Dosage: UNK (STOP DATE 07 MAR 2022)
     Route: 065
     Dates: start: 20220301, end: 20220307
  8. SULFAMETHOXAZOLE\TRIMETHOPRIM [Concomitant]
     Active Substance: SULFAMETHOXAZOLE\TRIMETHOPRIM
     Indication: Product used for unknown indication
     Dosage: (MONDAY AND TUESDAY)
     Route: 065
  9. VIGANTOL [Concomitant]
     Indication: Product used for unknown indication
     Dosage: QD
     Route: 065

REACTIONS (30)
  - Paronychia [Recovered/Resolved]
  - Staphylococcal infection [Recovered/Resolved]
  - Influenza [Recovered/Resolved]
  - Pyrexia [Recovered/Resolved]
  - Cough [Recovered/Resolved]
  - Pyrexia [Recovered/Resolved]
  - Hypogammaglobulinaemia [Recovered/Resolved]
  - Henoch-Schonlein purpura [Recovered/Resolved with Sequelae]
  - Dermatitis [Unknown]
  - Acne conglobata [Recovered/Resolved]
  - Infection [Recovered/Resolved]
  - Upper respiratory tract infection [Recovered/Resolved]
  - Viral infection [Recovered/Resolved]
  - Cystitis [Recovered/Resolved]
  - Cystitis [Recovered/Resolved]
  - Viral infection [Recovered/Resolved]
  - Blood lactate dehydrogenase increased [Unknown]
  - Proteinuria [Recovering/Resolving]
  - Eczema [Unknown]
  - Haematuria [Recovering/Resolving]
  - Folliculitis [Unknown]
  - Alanine aminotransferase increased [Unknown]
  - Aspartate aminotransferase increased [Unknown]
  - Cystitis [Recovered/Resolved]
  - Viral infection [Recovered/Resolved]
  - COVID-19 [Recovered/Resolved]
  - COVID-19 [Recovered/Resolved]
  - Fatigue [Recovered/Resolved]
  - Pyrexia [Recovered/Resolved]
  - Cough [Recovered/Resolved]

NARRATIVE: CASE EVENT DATE: 20180820
